FAERS Safety Report 19160492 (Version 1)
Quarter: 2021Q2

REPORT INFORMATION
  Report Type: Spontaneous
  Country: AU (occurrence: AU)
  Receive Date: 20210420
  Receipt Date: 20210420
  Transmission Date: 20210717
  Serious: Yes (Other)
  Sender: FDA-Public Use
  Company Number: NVSC2021AU089032

PATIENT
  Age: 70 Year
  Sex: Male

DRUGS (1)
  1. METHOTREXATE. [Suspect]
     Active Substance: METHOTREXATE
     Indication: PITYRIASIS RUBRA PILARIS
     Dosage: 20 MG
     Route: 058

REACTIONS (3)
  - Disease progression [Unknown]
  - Pityriasis rubra pilaris [Unknown]
  - Drug ineffective for unapproved indication [Unknown]
